FAERS Safety Report 9356294 (Version 3)
Quarter: 2013Q4

REPORT INFORMATION
  Report Type: Spontaneous
  Country: NL (occurrence: None)
  Receive Date: 20130614
  Receipt Date: 20131231
  Transmission Date: 20140711
  Serious: Yes (Death, Hospitalization)
  Sender: FDA-Public Use
  Company Number: 2013NL001713

PATIENT
  Age: 18 Year
  Sex: Female
  Weight: 60 kg

DRUGS (3)
  1. PONATINIB (AP24534) [Suspect]
     Indication: CHRONIC MYELOID LEUKAEMIA
     Route: 048
     Dates: start: 20130423, end: 20130515
  2. PONATINIB (AP24534) [Suspect]
     Indication: GENE MUTATION
     Route: 048
     Dates: start: 20130423, end: 20130515
  3. LAMOTRIGINE [Concomitant]

REACTIONS (7)
  - Febrile neutropenia [None]
  - Treatment failure [None]
  - Infection [None]
  - Sepsis [None]
  - Renal failure [None]
  - Chronic myeloid leukaemia [None]
  - Malignant neoplasm progression [None]
